FAERS Safety Report 5876613-7 (Version None)
Quarter: 2008Q3

REPORT INFORMATION
  Report Type: 
  Country: None (occurrence: None)
  Receive Date: 20080910
  Receipt Date: 20080905
  Transmission Date: 20090109
  Serious: Yes (Hospitalization)
  Sender: FDA-Public Use
  Company Number: BE-ABBOTT-08P-013-0473266-00

PATIENT
  Sex: Female

DRUGS (2)
  1. HUMIRA [Suspect]
     Indication: ANKYLOSING SPONDYLITIS
     Dates: start: 20080131
  2. HUMIRA [Suspect]

REACTIONS (3)
  - DRUG EFFECT DECREASED [None]
  - KIDNEY RUPTURE [None]
  - NEPHROLITHIASIS [None]
